FAERS Safety Report 7713958-X (Version None)
Quarter: 2011Q3

REPORT INFORMATION
  Report Type: 
  Country: None (occurrence: None)
  Receive Date: 20110826
  Receipt Date: 20110818
  Transmission Date: 20111222
  Serious: Yes (Life-Threatening, Other)
  Sender: FDA-Public Use
  Company Number: US-ABBOTT-11P-163-0840070-00

PATIENT
  Sex: Female
  Weight: 50.5 kg

DRUGS (18)
  1. METHOTREXATE [Concomitant]
  2. TYLENOL W/ CODEINE [Concomitant]
  3. METHOTREXATE [Concomitant]
     Indication: RHEUMATOID ARTHRITIS
     Route: 048
     Dates: start: 20030425, end: 20090929
  4. ESTROGENIC SUBSTANCE [Concomitant]
     Indication: HORMONE REPLACEMENT THERAPY
     Route: 048
     Dates: start: 19780101, end: 20010101
  5. PREDNISONE [Concomitant]
     Indication: RHEUMATOID ARTHRITIS
     Route: 048
     Dates: start: 20030825
  6. TYLENOL W/ CODEINE [Concomitant]
     Indication: ARTHRALGIA
     Route: 048
     Dates: start: 20021120
  7. LOPROX [Concomitant]
     Indication: ONYCHOLYSIS
     Route: 061
     Dates: start: 20030328
  8. CENTRUM SILVER [Concomitant]
     Indication: VITAMIN SUPPLEMENTATION
     Route: 048
     Dates: start: 19900101
  9. CARISOPRODOL [Concomitant]
     Indication: FIBROMYALGIA
     Route: 048
     Dates: start: 20011005
  10. FOLIC ACID [Concomitant]
     Indication: VITAMIN SUPPLEMENTATION
     Route: 048
     Dates: start: 20010426
  11. REFRESH TEARS [Concomitant]
     Indication: DRY EYE
     Dates: start: 20030108
  12. ESTROGENIC SUBSTANCE [Concomitant]
     Route: 048
     Dates: start: 20010101
  13. ALPRAZOLAM [Concomitant]
     Indication: ANXIETY
     Route: 048
     Dates: start: 19900101
  14. METHOTREXATE [Concomitant]
     Route: 048
     Dates: start: 20090930
  15. PREDNISONE [Concomitant]
     Route: 048
     Dates: start: 20091125
  16. HUMIRA [Suspect]
     Indication: RHEUMATOID ARTHRITIS
     Route: 058
     Dates: start: 20010402, end: 20110331
  17. SUMATRIPTAN SUCCINATE [Concomitant]
     Indication: MIGRAINE
     Route: 048
     Dates: start: 20040910
  18. CALCIUM +D [Concomitant]
     Indication: MINERAL SUPPLEMENTATION
     Route: 048
     Dates: start: 20100524

REACTIONS (1)
  - NON-SMALL CELL LUNG CANCER [None]
